FAERS Safety Report 18701557 (Version 1)
Quarter: 2021Q1

REPORT INFORMATION
  Report Type: Spontaneous
  Country: US (occurrence: US)
  Receive Date: 20210105
  Receipt Date: 20210105
  Transmission Date: 20210419
  Serious: Yes (Other)
  Sender: FDA-Public Use
  Company Number: US-PFIZER INC-2020520618

PATIENT
  Age: 49 Year
  Sex: Female
  Weight: 75.3 kg

DRUGS (1)
  1. LYRICA [Suspect]
     Active Substance: PREGABALIN
     Indication: FIBROMYALGIA
     Dosage: 225 MG, 2X/DAY (TWICE A DAY ONCE IN MORNING AND ONCE AFTERNOON)
     Dates: start: 2020, end: 202012

REACTIONS (1)
  - Systemic lupus erythematosus [Unknown]
